FAERS Safety Report 6072066-7 (Version None)
Quarter: 2009Q1

REPORT INFORMATION
  Report Type: 
  Country: None (occurrence: None)
  Receive Date: 20090205
  Receipt Date: 20090205
  Transmission Date: 20090719
  Serious: Yes (Hospitalization, Disabling)
  Sender: FDA-Public Use
  Company Number: None

PATIENT
  Age: 69 Year
  Sex: Male
  Weight: 90.7194 kg

DRUGS (1)
  1. SULFAMETHOXAZOLE AND TRIMETHOPRIM [Suspect]
     Indication: INFECTION PROPHYLAXIS
     Dosage: 2 TABLETS TWICE DAILY BY MOU
     Dates: start: 20090108, end: 20090121

REACTIONS (12)
  - DYSPHAGIA [None]
  - GINGIVAL BLEEDING [None]
  - HEPATIC FUNCTION ABNORMAL [None]
  - LACERATION [None]
  - LIP HAEMORRHAGE [None]
  - OEDEMA MOUTH [None]
  - OROPHARYNGEAL PAIN [None]
  - PHARYNGEAL OEDEMA [None]
  - RENAL IMPAIRMENT [None]
  - SKIN EXFOLIATION [None]
  - URTICARIA [None]
  - VISUAL IMPAIRMENT [None]
